FAERS Safety Report 21561800 (Version 2)
Quarter: 2022Q4

REPORT INFORMATION
  Report Type: Spontaneous
  Country: US (occurrence: US)
  Receive Date: 20221107
  Receipt Date: 20221110
  Transmission Date: 20230113
  Serious: Yes (Other)
  Sender: FDA-Public Use
  Company Number: US-002147023-NVSC2022US248718

PATIENT
  Age: 78 Year
  Sex: Female

DRUGS (6)
  1. LINEZOLID [Suspect]
     Active Substance: LINEZOLID
     Indication: COVID-19
     Dosage: UNK (STARTED 4 DAYS PRIOR TO ERUPTION)
     Route: 065
  2. PIPERACILLIN AND TAZOBACTAM [Suspect]
     Active Substance: PIPERACILLIN SODIUM\TAZOBACTAM SODIUM
     Indication: COVID-19
     Dosage: UNK (STARTED 30 DAYS PRIOR TO ERUPTION)
     Route: 065
  3. CEFEPIME [Suspect]
     Active Substance: CEFEPIME HYDROCHLORIDE
     Indication: COVID-19
     Dosage: UNK (STARTED 4 DAYS PRIOR TO ERUPTION)
     Route: 065
  4. HYDRALAZINE [Suspect]
     Active Substance: HYDRALAZINE HYDROCHLORIDE
     Indication: COVID-19
     Dosage: UNK (STARTED 5 DAYS PRIOR TO ERUPTION)
     Route: 065
  5. MEROPENEM [Suspect]
     Active Substance: MEROPENEM
     Indication: COVID-19
     Dosage: UNK (STARTED SAME DAY AS ERUPTION)
     Route: 065
  6. FENTANYL [Suspect]
     Active Substance: FENTANYL
     Indication: COVID-19
     Dosage: UNK (STARTED 4 DAYS PRIOR TO ERUPTION)
     Route: 065

REACTIONS (2)
  - Acute generalised exanthematous pustulosis [Unknown]
  - Product use in unapproved indication [Unknown]
